FAERS Safety Report 13078045 (Version 2)
Quarter: 2017Q1

REPORT INFORMATION
  Report Type: Spontaneous
  Country: GB (occurrence: GB)
  Receive Date: 20170102
  Receipt Date: 20170126
  Transmission Date: 20170428
  Serious: Yes (Hospitalization, Disabling)
  Sender: FDA-Public Use
  Company Number: GB-JNJFOC-20161219824

PATIENT
  Age: 77 Year
  Sex: Female

DRUGS (2)
  1. PARACETAMOL [Suspect]
     Active Substance: ACETAMINOPHEN
     Indication: PAIN
     Dosage: CUMULATIVE DOSE TO FIRST REACTION: 4.0 (UNSPECIFIED UNIT)
     Route: 048
     Dates: start: 20160921, end: 20160921
  2. PARACETAMOL [Suspect]
     Active Substance: ACETAMINOPHEN
     Route: 048

REACTIONS (3)
  - Aggression [Recovered/Resolved]
  - Drug hypersensitivity [Unknown]
  - Agitation [Recovered/Resolved]

NARRATIVE: CASE EVENT DATE: 20160921
